FAERS Safety Report 12807117 (Version 1)
Quarter: 2016Q4

REPORT INFORMATION
  Report Type: Spontaneous
  Country: US (occurrence: US)
  Receive Date: 20161003
  Receipt Date: 20161003
  Transmission Date: 20170207
  Serious: No
  Sender: FDA-Public Use
  Company Number: None

PATIENT
  Age: 75 Year
  Sex: Female
  Weight: 58.5 kg

DRUGS (11)
  1. HUMULIN NOS [Concomitant]
     Active Substance: INSULIN HUMAN
  2. NADALOL [Concomitant]
  3. CALCIUM + VITAMIN D [Concomitant]
     Active Substance: CALCIUM\VITAMIN D
  4. LEVEMIR [Concomitant]
     Active Substance: INSULIN DETEMIR
  5. LISINOPRIL. [Concomitant]
     Active Substance: LISINOPRIL
  6. MULTI VITAMIN [Concomitant]
     Active Substance: VITAMINS
  7. FLUZONE [Suspect]
     Active Substance: INFLUENZA A VIRUS A/CALIFORNIA/7/2009 X-179A (H1N1) ANTIGEN (FORMALDEHYDE INACTIVATED)\INFLUENZA A VIRUS A/VICTORIA/210/2009 X-187 (H3N2) ANTIGEN (FORMALDEHYDE INACTIVATED)\INFLUENZA B VIRUS B/BRISBANE/60/2008 ANTIGEN (FORMALDEHYDE INACTIVATED)
     Indication: INFLUENZA IMMUNISATION
     Route: 030
     Dates: start: 20160928
  8. PENTASA [Concomitant]
     Active Substance: MESALAMINE
  9. GENERIC CLARITIN [Concomitant]
  10. URSODIOL. [Concomitant]
     Active Substance: URSODIOL
  11. NEXIUM [Concomitant]
     Active Substance: ESOMEPRAZOLE MAGNESIUM

REACTIONS (5)
  - Body temperature increased [None]
  - No reaction on previous exposure to drug [None]
  - Arthralgia [None]
  - Myalgia [None]
  - Chills [None]

NARRATIVE: CASE EVENT DATE: 20160928
